FAERS Safety Report 6809729-9 (Version None)
Quarter: 2010Q2

REPORT INFORMATION
  Report Type: 
  Country: None (occurrence: None)
  Receive Date: 20100630
  Receipt Date: 20100622
  Transmission Date: 20101027
  Serious: Yes (Other)
  Sender: FDA-Public Use
  Company Number: BR-WYE-H15802210

PATIENT
  Sex: Female
  Weight: 60 kg

DRUGS (1)
  1. TAZOCIN [Suspect]
     Indication: SEPSIS
     Dosage: 4.5G/UNKNOWN FREQUENCY
     Route: 042
     Dates: start: 20100601

REACTIONS (3)
  - CYANOSIS [None]
  - HYPERTENSION [None]
  - SHOCK [None]
